FAERS Safety Report 5631712-X (Version None)
Quarter: 2008Q1

REPORT INFORMATION
  Report Type: 
  Country: None (occurrence: None)
  Receive Date: 20080220
  Receipt Date: 20080214
  Transmission Date: 20080703
  Serious: Yes (Other)
  Sender: FDA-Public Use
  Company Number: ES-JNJFOC-20080203388

PATIENT
  Sex: Male

DRUGS (2)
  1. RISPERDAL CONSTA [Suspect]
     Indication: SCHIZOAFFECTIVE DISORDER
     Route: 030
     Dates: start: 20050511
  2. PLENUR [Concomitant]
     Indication: SCHIZOAFFECTIVE DISORDER
     Dates: start: 19940101

REACTIONS (2)
  - LEUKOPENIA [None]
  - NEUTROPENIA [None]
